FAERS Safety Report 6549128-0 (Version None)
Quarter: 2010Q1

REPORT INFORMATION
  Report Type: 
  Country: None (occurrence: None)
  Receive Date: 20100125
  Receipt Date: 20100115
  Transmission Date: 20100710
  Serious: Yes (Hospitalization, Other)
  Sender: FDA-Public Use
  Company Number: US-AMGEN-QUU385994

PATIENT
  Sex: Female

DRUGS (9)
  1. ENBREL [Suspect]
     Indication: PSORIATIC ARTHROPATHY
  2. HUMIRA [Suspect]
     Dates: start: 20060101, end: 20091201
  3. METHOTREXATE [Concomitant]
  4. FOLIC ACID [Concomitant]
  5. SIMVASTATIN [Concomitant]
  6. PANTOPRAZOLE [Concomitant]
  7. BUPROPION [Concomitant]
  8. NAPROSYN [Concomitant]
  9. GABAPENTIN [Concomitant]

REACTIONS (12)
  - BURSITIS [None]
  - CELLULITIS [None]
  - CHONDROPATHY [None]
  - DIABETES MELLITUS [None]
  - DRUG INEFFECTIVE [None]
  - ERYTHEMA [None]
  - ILL-DEFINED DISORDER [None]
  - INSOMNIA [None]
  - LIGAMENT DISORDER [None]
  - LIMB DEFORMITY [None]
  - MEMORY IMPAIRMENT [None]
  - THERMAL BURN [None]
